FAERS Safety Report 21846897 (Version 1)
Quarter: 2023Q1

REPORT INFORMATION
  Report Type: Report from Study
  Country: KR (occurrence: KR)
  Receive Date: 20230111
  Receipt Date: 20230111
  Transmission Date: 20230417
  Serious: Yes (Other)
  Sender: FDA-Public Use
  Company Number: KR-JNJFOC-20230107755

PATIENT

DRUGS (2)
  1. SIMPONI [Suspect]
     Active Substance: GOLIMUMAB
     Indication: Colitis ulcerative
     Route: 058
  2. TOFACITINIB [Suspect]
     Active Substance: TOFACITINIB
     Indication: Colitis ulcerative
     Route: 065

REACTIONS (2)
  - Tuberculosis [Unknown]
  - Herpes zoster [Unknown]
